FAERS Safety Report 8572020-7 (Version None)
Quarter: 2012Q3

REPORT INFORMATION
  Report Type: 
  Country: None (occurrence: None)
  Receive Date: 20120806
  Receipt Date: 20120727
  Transmission Date: 20120928
  Serious: Yes (Hospitalization, Other)
  Sender: FDA-Public Use
  Company Number: CA-SANOFI-AVENTIS-2012SA054102

PATIENT
  Age: 51 Year
  Sex: Male

DRUGS (28)
  1. OXALIPLATIN [Suspect]
     Dosage: EVERY 3 WEEKS
     Route: 041
     Dates: start: 20120627, end: 20120627
  2. IRINOTECAN HCL [Suspect]
     Route: 042
     Dates: start: 20120101, end: 20120101
  3. AMINO ACIDS NOS/MINERALS NOS/VITAMINS NOS [Concomitant]
     Dosage: 1 CAN DAILY
     Route: 048
     Dates: start: 20120301
  4. SENNA-MINT WAF [Concomitant]
     Indication: CONSTIPATION
     Route: 048
     Dates: start: 20120323
  5. ZOFRAN [Concomitant]
     Indication: PREMEDICATION
     Route: 048
     Dates: start: 20120321
  6. MAXERAN [Concomitant]
     Dosage: AS NEEDED FOR NAUSEA PROPHYLAXIS
     Route: 048
     Dates: start: 20120321
  7. ZOFRAN [Concomitant]
     Route: 048
     Dates: start: 20120321
  8. MOTILIUM [Concomitant]
     Route: 048
     Dates: start: 20120528
  9. ACETAMINOPHEN [Concomitant]
     Indication: PAIN MANAGEMENT
     Dosage: REGULAR STRENGTH
     Route: 048
     Dates: start: 20120316
  10. IBUPROFEN (ADVIL) [Concomitant]
     Indication: PAIN MANAGEMENT
     Route: 048
     Dates: start: 20120320
  11. PANTOPRAZOLE [Concomitant]
     Route: 048
     Dates: start: 20120102
  12. MAXERAN [Concomitant]
     Dosage: AS NEEDED FOR NAUSEA PROPHYLAXIS
     Route: 048
     Dates: start: 20120321
  13. CALCIUM CARBONATE [Concomitant]
     Dosage: 1 TO 2 TABLETS AS NEEDED
     Route: 048
  14. MAXERAN [Concomitant]
     Dosage: 1 HOUR PRE-CHEMOTHERAPY AS NEEDED
     Route: 048
     Dates: start: 20120321
  15. MOTILIUM [Concomitant]
     Route: 048
     Dates: start: 20120528
  16. IRINOTECAN HCL [Suspect]
     Route: 042
     Dates: start: 20120627, end: 20120627
  17. DEXAMETHASONE [Concomitant]
     Indication: PREMEDICATION
     Route: 048
     Dates: start: 20120321
  18. POLYETHYLENE GLYCOL [Concomitant]
     Indication: CONSTIPATION
     Route: 048
     Dates: start: 20120528
  19. OXALIPLATIN [Suspect]
     Dosage: EVERY 3 WEEKS
     Route: 041
     Dates: start: 20120321, end: 20120321
  20. IMMUNE GLOBULIN (HUMAN) [Concomitant]
     Route: 042
     Dates: start: 20060101
  21. COLACE [Concomitant]
     Indication: CONSTIPATION
     Route: 048
     Dates: start: 20120323
  22. ATROPINE [Concomitant]
     Indication: PREMEDICATION
     Route: 058
     Dates: start: 20120321
  23. OXALIPLATIN [Suspect]
     Dosage: EVERY 3 WEEKS
     Route: 041
     Dates: start: 20120101, end: 20120101
  24. IRINOTECAN HCL [Suspect]
     Dosage: EVERY 3 WEEKS
     Route: 042
     Dates: start: 20120321, end: 20120321
  25. XELODA [Suspect]
     Dosage: 2 TIMES A DAY FOR 14 DAYS
     Route: 048
     Dates: start: 20120322, end: 20120627
  26. VITAMIN B-12 [Concomitant]
     Indication: VITAMIN B12 INCREASED
     Route: 030
     Dates: start: 19980101
  27. MAXERAN [Concomitant]
     Indication: PREMEDICATION
     Dosage: 1 HOUR PRE-CHEMOTHERAPY AS NEEDED
     Route: 048
     Dates: start: 20120321
  28. DEXAMETHASONE [Concomitant]
     Route: 048
     Dates: start: 20120321

REACTIONS (2)
  - HYPOKALAEMIA [None]
  - SUPRAVENTRICULAR TACHYCARDIA [None]
